FAERS Safety Report 23211119 (Version 1)
Quarter: 2023Q4

REPORT INFORMATION
  Report Type: Spontaneous
  Country: US (occurrence: None)
  Receive Date: 20231120
  Receipt Date: 20231120
  Transmission Date: 20240110
  Serious: Yes (Hospitalization)
  Sender: FDA-Public Use
  Company Number: None

PATIENT
  Age: 68 Year
  Sex: Male
  Weight: 150.75 kg

DRUGS (10)
  1. BREXUCABTAGENE AUTOLEUCEL [Suspect]
     Active Substance: BREXUCABTAGENE AUTOLEUCEL
     Indication: Mantle cell lymphoma
     Dosage: OTHER FREQUENCY : ONCE;?
     Route: 041
     Dates: start: 20230821, end: 20230821
  2. ALLOPURINOL [Concomitant]
     Active Substance: ALLOPURINOL
  3. APIXABAN [Concomitant]
     Active Substance: APIXABAN
  4. FLUCONAZOLE [Concomitant]
     Active Substance: FLUCONAZOLE
  5. FLUTICASONE [Concomitant]
     Active Substance: FLUTICASONE
  6. LEVETIRACETAM [Concomitant]
     Active Substance: LEVETIRACETAM
  7. OXYCODONE [Concomitant]
     Active Substance: OXYCODONE
  8. POTASSIUM CHLORIDE [Concomitant]
     Active Substance: POTASSIUM CHLORIDE
  9. TAMSULOSIN [Concomitant]
     Active Substance: TAMSULOSIN
  10. VALACYCLOVIR [Concomitant]
     Active Substance: VALACYCLOVIR HYDROCHLORIDE

REACTIONS (8)
  - Lymphocyte adoptive therapy [None]
  - Immune effector cell-associated neurotoxicity syndrome [None]
  - Syncope [None]
  - Pyrexia [None]
  - Hypotension [None]
  - Tachycardia [None]
  - Neutropenia [None]
  - C-reactive protein increased [None]

NARRATIVE: CASE EVENT DATE: 20230827
